FAERS Safety Report 7314619-1 (Version None)
Quarter: 2011Q1

REPORT INFORMATION
  Report Type: 
  Country: None (occurrence: None)
  Receive Date: 20110225
  Receipt Date: 20101129
  Transmission Date: 20110831
  Serious: No
  Sender: FDA-Public Use
  Company Number: US-MYLANLABS-2010S1019180

PATIENT
  Age: 23 Year
  Sex: Female
  Weight: 52.16 kg

DRUGS (5)
  1. AMNESTEEM [Suspect]
     Route: 048
     Dates: start: 20101004
  2. AMNESTEEM [Suspect]
     Route: 048
  3. ORAL CONTRACEPTIVE NOS [Concomitant]
  4. AMNESTEEM [Suspect]
     Route: 048
  5. AMNESTEEM [Suspect]
     Indication: ACNE
     Route: 048
     Dates: start: 20100701

REACTIONS (1)
  - DYSPHAGIA [None]
